FAERS Safety Report 8059443-X (Version None)
Quarter: 2012Q1

REPORT INFORMATION
  Report Type: 
  Country: None (occurrence: None)
  Receive Date: 20120120
  Receipt Date: 20120118
  Transmission Date: 20120608
  Serious: Yes (Hospitalization)
  Sender: FDA-Public Use
  Company Number: GB-ROCHE-1031796

PATIENT
  Age: 33 Year
  Sex: Male

DRUGS (6)
  1. METHADONE HCL [Concomitant]
  2. OMEPRAZOLE [Concomitant]
  3. PEGASYS [Suspect]
     Indication: HEPATITIS C
     Route: 058
  4. RIBAVIRIN [Concomitant]
     Indication: HEPATITIS C
     Route: 045
  5. CITALOPRAM HYDROBROMIDE [Concomitant]
  6. DOMPERIDONE [Concomitant]

REACTIONS (7)
  - POLYDIPSIA [None]
  - DIABETES MELLITUS [None]
  - BONE MARROW FAILURE [None]
  - DIABETIC KETOACIDOSIS [None]
  - POLYURIA [None]
  - PANCYTOPENIA [None]
  - WEIGHT DECREASED [None]
